FAERS Safety Report 16112708 (Version 2)
Quarter: 2019Q2

REPORT INFORMATION
  Report Type: Report from Study
  Country: ZA (occurrence: ZA)
  Receive Date: 20190325
  Receipt Date: 20190408
  Transmission Date: 20190711
  Serious: Yes (Hospitalization)
  Sender: FDA-Public Use
  Company Number: ZA-VIIV HEALTHCARE LIMITED-ZA2019GSK052354

PATIENT
  Age: 1 Year

DRUGS (10)
  1. ISONIAZID + RIFAMPICIN [Concomitant]
     Active Substance: ISONIAZID\RIFAMPIN
     Dosage: UNK (60/60), QD
  2. ABACAVIR. [Concomitant]
     Active Substance: ABACAVIR
     Dosage: 4 ML, BID
  3. MARAVIROC [Concomitant]
     Active Substance: MARAVIROC
     Dosage: 2.5 ML, QD
  4. BACTRIM [Concomitant]
     Active Substance: SULFAMETHOXAZOLE\TRIMETHOPRIM
     Dosage: 5 ML, QD
  5. FTC/TDF [Concomitant]
     Active Substance: EMTRICITABINE\TENOFOVIR DISOPROXIL FUMARATE
     Dosage: UNK (300/200MG), QD
     Dates: start: 20180124
  6. 3TC [Concomitant]
     Active Substance: LAMIVUDINE
     Dosage: 4 ML, BID
  7. RITONAVIR. [Concomitant]
     Active Substance: RITONAVIR
     Dosage: 1.5 ML, BID
  8. DOLUTEGRAVIR [Suspect]
     Active Substance: DOLUTEGRAVIR
     Indication: HIV INFECTION
     Dosage: 50 MG, QD
     Route: 048
     Dates: start: 20180124
  9. KALITRANS [Concomitant]
     Active Substance: POTASSIUM CHLORIDE
     Dosage: 1.5 ML, BID
  10. PYRIDOXINE [Concomitant]
     Active Substance: PYRIDOXINE
     Dosage: 12.5 ML, QD

REACTIONS (1)
  - Dyspnoea [Recovered/Resolved]

NARRATIVE: CASE EVENT DATE: 20190319
